FAERS Safety Report 4615299-6 (Version None)
Quarter: 2005Q1

REPORT INFORMATION
  Report Type: 
  Country: None (occurrence: None)
  Receive Date: 20050317
  Receipt Date: 20050304
  Transmission Date: 20050727
  Serious: Yes (Other)
  Sender: FDA-Public Use
  Company Number: 2005042021

PATIENT
  Age: 70 Year
  Sex: Female
  Weight: 56.6996 kg

DRUGS (7)
  1. NEURONTIN [Suspect]
     Indication: DEPRESSION
     Dosage: (2 IN 1 D), ORAL
     Route: 048
  2. VALPROATE SODIUM [Suspect]
     Indication: ILL-DEFINED DISORDER
     Dates: start: 20050101
  3. BUPROPION (BUPROPION) [Concomitant]
  4. QUINAPRIL HCL [Concomitant]
  5. VENLAFAXINE HCL [Concomitant]
  6. CONJUGATED ESTROGENS [Concomitant]
  7. VITAMINS (VITAMINS) [Concomitant]

REACTIONS (3)
  - CONDITION AGGRAVATED [None]
  - COORDINATION ABNORMAL [None]
  - DEPRESSION [None]
